FAERS Safety Report 11476950 (Version 1)
Quarter: 2015Q3

REPORT INFORMATION
  Report Type: Spontaneous
  Country: US (occurrence: US)
  Receive Date: 20150909
  Receipt Date: 20150909
  Transmission Date: 20151125
  Serious: No
  Sender: FDA-Public Use
  Company Number: US-JAZZ-2014-US-011198

PATIENT
  Sex: Female
  Weight: 68.27 kg

DRUGS (13)
  1. XYREM [Suspect]
     Active Substance: SODIUM OXYBATE
     Indication: NARCOLEPSY
     Dosage: 2.25 G, QD
     Route: 048
     Dates: start: 201401, end: 201401
  2. METFORMIN [Concomitant]
     Active Substance: METFORMIN HYDROCHLORIDE
     Indication: POLYCYSTIC OVARIES
     Dosage: 500 MG, BID
     Route: 048
  3. XYREM [Suspect]
     Active Substance: SODIUM OXYBATE
     Dosage: DOSE ADJUSTMENTS
     Route: 048
  4. XYREM [Suspect]
     Active Substance: SODIUM OXYBATE
     Dosage: 3 G, BID
     Route: 048
     Dates: start: 2014
  5. GENERIC IMODIUM [Concomitant]
     Indication: IRRITABLE BOWEL SYNDROME
     Dosage: UNK
     Route: 048
  6. MULTIVITAMIN [Concomitant]
     Active Substance: VITAMINS
     Indication: SUPPLEMENTATION THERAPY
     Dosage: UNK
     Route: 048
  7. SPIRONOLACTONE. [Concomitant]
     Active Substance: SPIRONOLACTONE
     Indication: POLYCYSTIC OVARIES
     Dosage: 50 MG, BID
     Route: 048
  8. HYOSCYAMINE. [Concomitant]
     Active Substance: HYOSCYAMINE
     Indication: IRRITABLE BOWEL SYNDROME
     Dosage: 0.125 MG, PRN
     Route: 048
  9. GENERIC YASMIN [Concomitant]
     Indication: POLYCYSTIC OVARIES
     Dosage: UNK
     Route: 048
  10. BUSPIRONE [Suspect]
     Active Substance: BUSPIRONE HYDROCHLORIDE
     Indication: MOOD SWINGS
     Dosage: 15 MG, BID
     Route: 048
  11. BUSPIRONE [Suspect]
     Active Substance: BUSPIRONE HYDROCHLORIDE
     Indication: ANXIETY
  12. LAMOTRIGINE. [Concomitant]
     Active Substance: LAMOTRIGINE
     Indication: MOOD SWINGS
     Dosage: 150 MG, BID
     Route: 048
  13. GENERIC ZYRTEC [Concomitant]
     Indication: HYPERSENSITIVITY
     Dosage: 10 MG, QD
     Route: 048

REACTIONS (4)
  - Stress [Not Recovered/Not Resolved]
  - Confusional state [Not Recovered/Not Resolved]
  - Memory impairment [Not Recovered/Not Resolved]
  - Amnesia [Not Recovered/Not Resolved]

NARRATIVE: CASE EVENT DATE: 2014
